FAERS Safety Report 9921904 (Version 2)
Quarter: 2014Q1

REPORT INFORMATION
  Report Type: Spontaneous
  Country: CA (occurrence: CA)
  Receive Date: 20140225
  Receipt Date: 20140225
  Transmission Date: 20141002
  Serious: Yes (Disabling)
  Sender: FDA-Public Use
  Company Number: CA-PFIZER INC-2013310230

PATIENT
  Age: 64 Year
  Sex: Male
  Weight: 144 kg

DRUGS (16)
  1. SOMAVERT [Suspect]
     Indication: ACROMEGALY
     Dosage: 10 MG, 1X/DAY
     Route: 058
     Dates: start: 20131024
  2. SOMAVERT [Suspect]
     Indication: GROWTH HORMONE-PRODUCING PITUITARY TUMOUR
  3. DIOVAN [Concomitant]
     Dosage: 160 MG, 2X/DAY
  4. WELLBUTRIN [Concomitant]
     Dosage: 100 MG, UNK
  5. MELOXICAM [Concomitant]
     Dosage: UNK
  6. TIZANIDINE [Concomitant]
     Dosage: UNK
  7. TIAZAC [Concomitant]
     Dosage: UNK
  8. CLONAZEPAM [Concomitant]
     Dosage: UNK
  9. NASONEX [Concomitant]
     Dosage: UNK
  10. AVODART [Concomitant]
     Dosage: UNK
  11. VITAMIN D [Concomitant]
     Dosage: UNK
  12. ECASA [Concomitant]
     Dosage: UNK
  13. SOMATULINE AUTOGEL [Concomitant]
     Dosage: 120 MG, MONTHLY
  14. DULOXETINE [Concomitant]
     Dosage: 90 MG, UNK
  15. ESOMEPRAZOLE [Concomitant]
     Dosage: UNK
  16. HCTZ [Concomitant]
     Dosage: 12.5 MG, UNK

REACTIONS (6)
  - Tinnitus [Recovered/Resolved]
  - Arthralgia [Recovered/Resolved]
  - Headache [Recovered/Resolved]
  - Injection site pain [Recovered/Resolved]
  - Injection site discomfort [Recovered/Resolved]
  - Feeling abnormal [Recovered/Resolved]
